FAERS Safety Report 18716957 (Version 1)
Quarter: 2021Q1

REPORT INFORMATION
  Report Type: Spontaneous
  Country: US (occurrence: US)
  Receive Date: 20210108
  Receipt Date: 20210108
  Transmission Date: 20210419
  Serious: No
  Sender: FDA-Public Use
  Company Number: US-PFIZER INC-2017015986

PATIENT
  Age: 84 Year
  Sex: Female

DRUGS (3)
  1. IBRANCE [Suspect]
     Active Substance: PALBOCICLIB
     Indication: BREAST CANCER FEMALE
     Dosage: 125 MG, CYCLIC (1 PO (PER ORAL) Q (EVERY) DAY FOR 21 DAYS THEN ONE WEEK OFF)
     Route: 048
     Dates: start: 20170109
  2. IBRANCE [Suspect]
     Active Substance: PALBOCICLIB
     Indication: BREAST CANCER METASTATIC
  3. FEMARA [Concomitant]
     Active Substance: LETROZOLE
     Dosage: 2.5 MG, DAILY (1PO (PER ORAL) Q (EVERY) DAY)
     Route: 048
     Dates: start: 20170109

REACTIONS (1)
  - Localised infection [Recovering/Resolving]
